FAERS Safety Report 9412076 (Version 1)
Quarter: 2013Q3

REPORT INFORMATION
  Report Type: Spontaneous
  Country: US (occurrence: US)
  Receive Date: 20130722
  Receipt Date: 20130722
  Transmission Date: 20140515
  Serious: Yes (Hospitalization)
  Sender: FDA-Public Use
  Company Number: US-BAYER-2013-088116

PATIENT
  Age: 39 Year
  Sex: Female

DRUGS (6)
  1. YAZ [Suspect]
  2. YASMIN [Suspect]
  3. DEPO MEDROL [Concomitant]
     Dosage: UNK
     Dates: start: 20070611
  4. FLUOCINONIDE [Concomitant]
     Dosage: UNK
     Dates: start: 20070611
  5. PREDNISONE [Concomitant]
     Dosage: UNK
     Dates: start: 20070618
  6. SIMVASTATIN [Concomitant]

REACTIONS (2)
  - Pelvic venous thrombosis [None]
  - Deep vein thrombosis [None]
